FAERS Safety Report 12080833 (Version 2)
Quarter: 2016Q1

REPORT INFORMATION
  Report Type: Spontaneous
  Country: FR (occurrence: FR)
  Receive Date: 20160216
  Receipt Date: 20160314
  Transmission Date: 20160526
  Serious: Yes (Life-Threatening)
  Sender: FDA-Public Use
  Company Number: FR-TEVA-635103ISR

PATIENT
  Age: 90 Year
  Sex: Female

DRUGS (1)
  1. AMOXICILLINE ACIDE CLAVULANIC [Suspect]
     Active Substance: AMOXICILLIN\CLAVULANIC ACID
     Indication: BRONCHITIS

REACTIONS (1)
  - Pemphigoid [Recovering/Resolving]
